FAERS Safety Report 9248175 (Version 1)
Quarter: 2013Q1

REPORT INFORMATION
  Report Type: Spontaneous
  Country: US (occurrence: None)
  Receive Date: 20130305
  Receipt Date: 20130305
  Transmission Date: 20140127
  Serious: Yes (Other)
  Sender: FDA-Public Use
  Company Number: 163-21880-12101396

PATIENT
  Age: 85 Year
  Sex: Female
  Weight: 65.32 kg

DRUGS (9)
  1. REVLIMID [Suspect]
     Indication: PLASMA CELL MYELOMA
     Dosage: 10 MG, 21 IN 28 D, PO
     Route: 048
     Dates: start: 20120819
  2. B12 (CYANOCOBALAMIN [Concomitant]
  3. CALCIUM +D (OS-CAL) [Concomitant]
  4. METOPROLOL SUCCINATE (METOPROLOL SUCCINATE [Concomitant]
  5. MIRALAX (MACROGOL) POWDER [Concomitant]
  6. VITAMIN D (ERGOCALCIFEROL) [Concomitant]
  7. ZOMETA (ZOLEDRONIC ACID) [Concomitant]
  8. ASPIRIN (ACETYLSALICYLIC ACID) [Concomitant]
  9. CALCIUM CITRATE PLUS VITAMIN (CALCIUM CITRATE W/COLECALCIFEROL [Concomitant]

REACTIONS (2)
  - Swelling [None]
  - Constipation [None]
